FAERS Safety Report 6011554-6 (Version None)
Quarter: 2008Q4

REPORT INFORMATION
  Report Type: 
  Country: None (occurrence: None)
  Receive Date: 20081218
  Receipt Date: 20080909
  Transmission Date: 20090506
  Serious: No
  Sender: FDA-Public Use
  Company Number: US-ASTRAZENECA-2008UW18662

PATIENT
  Age: 58 Year
  Sex: Female
  Weight: 71.2 kg

DRUGS (4)
  1. CRESTOR [Suspect]
     Indication: BLOOD CHOLESTEROL INCREASED
     Route: 048
     Dates: start: 20080801, end: 20080801
  2. CRESTOR [Suspect]
     Route: 048
     Dates: start: 20080801
  3. FLAX SEED OIL [Concomitant]
  4. HERBS [Concomitant]

REACTIONS (4)
  - ARTHRALGIA [None]
  - BLOOD TRIGLYCERIDES INCREASED [None]
  - MYALGIA [None]
  - PAIN [None]
